FAERS Safety Report 12581382 (Version 2)
Quarter: 2016Q3

REPORT INFORMATION
  Report Type: Spontaneous
  Country: US (occurrence: US)
  Receive Date: 20160721
  Receipt Date: 20160801
  Transmission Date: 20161109
  Serious: Yes (Other)
  Sender: FDA-Public Use
  Company Number: US-BRISTOL-MYERS SQUIBB COMPANY-BMS-2016-058658

PATIENT
  Sex: Female

DRUGS (5)
  1. YERVOY [Suspect]
     Active Substance: IPILIMUMAB
     Dosage: 700 MG, UNK
     Route: 065
     Dates: start: 20160324
  2. YERVOY [Suspect]
     Active Substance: IPILIMUMAB
     Indication: MALIGNANT MELANOMA
     Dosage: 850 MG, UNK
     Route: 065
     Dates: start: 20160211
  3. YERVOY [Suspect]
     Active Substance: IPILIMUMAB
     Dosage: 650 MG, UNK
     Route: 065
     Dates: start: 20160303
  4. YERVOY [Suspect]
     Active Substance: IPILIMUMAB
     Dosage: 700 MG, UNK
     Route: 065
     Dates: start: 20160414
  5. YERVOY [Suspect]
     Active Substance: IPILIMUMAB
     Dosage: 800 MG, UNK
     Route: 065

REACTIONS (2)
  - Hospitalisation [Unknown]
  - Adverse drug reaction [Unknown]
